FAERS Safety Report 17339498 (Version 1)
Quarter: 2020Q1

REPORT INFORMATION
  Report Type: Spontaneous
  Country: US (occurrence: US)
  Receive Date: 20200114
  Receipt Date: 20200114
  Transmission Date: 20200409
  Serious: Yes (Life-Threatening)
  Sender: FDA-Public Use
  Company Number: None

PATIENT
  Sex: Male

DRUGS (4)
  1. DOXYCYCL HYC [Concomitant]
  2. HUMIRA [Suspect]
     Active Substance: ADALIMUMAB
     Indication: CROHN^S DISEASE
     Route: 058
     Dates: start: 20190130
  3. PREDNISONE. [Concomitant]
     Active Substance: PREDNISONE
  4. MERCAPTOPUR [Concomitant]

REACTIONS (2)
  - Condition aggravated [None]
  - Adverse reaction [None]
